FAERS Safety Report 7865085-9 (Version None)
Quarter: 2011Q4

REPORT INFORMATION
  Report Type: 
  Country: None (occurrence: None)
  Receive Date: 20111028
  Receipt Date: 20101012
  Transmission Date: 20120403
  Serious: No
  Sender: FDA-Public Use
  Company Number: US-GLAXOSMITHKLINE-A0886119A

PATIENT
  Age: 63 Year
  Sex: Female

DRUGS (9)
  1. LANTUS [Concomitant]
  2. ADVAIR DISKUS 100/50 [Suspect]
     Indication: ASTHMA
     Dosage: 1PUFF TWICE PER DAY
     Route: 055
     Dates: start: 20080401
  3. PROAIR HFA [Concomitant]
  4. PLAVIX [Concomitant]
  5. ACCUPRIL [Concomitant]
  6. ATENOLOL [Concomitant]
  7. PRAVACHOL [Concomitant]
  8. ZETIA [Concomitant]
  9. HUMULIN R [Concomitant]

REACTIONS (3)
  - BLOOD IMMUNOGLOBULIN E INCREASED [None]
  - URTICARIA [None]
  - DYSPHONIA [None]
